APPROVED DRUG PRODUCT: PARAFON FORTE DSC
Active Ingredient: CHLORZOXAZONE
Strength: 500MG **Federal Register determination that product was not discontinued or withdrawn for safety or effectiveness reasons**
Dosage Form/Route: TABLET;ORAL
Application: N011529 | Product #002
Applicant: JANSSEN RESEARCH AND DEVELOPMENT LLC
Approved: Jun 15, 1987 | RLD: Yes | RS: No | Type: DISCN